FAERS Safety Report 6531175-6 (Version None)
Quarter: 2010Q1

REPORT INFORMATION
  Report Type: 
  Country: None (occurrence: None)
  Receive Date: 20100108
  Receipt Date: 20100102
  Transmission Date: 20100710
  Serious: Yes (Hospitalization)
  Sender: FDA-Public Use
  Company Number: US-AMGEN-QUU383460

PATIENT
  Sex: Male

DRUGS (3)
  1. ENBREL [Suspect]
     Indication: RHEUMATOID ARTHRITIS
     Route: 058
     Dates: start: 20080521
  2. SULFASALAZINE [Concomitant]
     Route: 048
  3. LEFLUNOMIDE [Concomitant]

REACTIONS (5)
  - BACK PAIN [None]
  - CORONARY ARTERY BYPASS [None]
  - HEADACHE [None]
  - NASAL CONGESTION [None]
  - STAPHYLOCOCCAL INFECTION [None]
